FAERS Safety Report 11090357 (Version 2)
Quarter: 2015Q4

REPORT INFORMATION
  Report Type: Report from Study
  Country: CO (occurrence: CO)
  Receive Date: 20150505
  Receipt Date: 20151006
  Transmission Date: 20160304
  Serious: Yes (Death, Life-Threatening, Disabling)
  Sender: FDA-Public Use
  Company Number: CO-AMGEN-COLSL2015042656

PATIENT
  Age: 70 Year
  Sex: Male
  Weight: 68 kg

DRUGS (1)
  1. MIMPARA [Suspect]
     Active Substance: CINACALCET HYDROCHLORIDE
     Indication: HYPERPARATHYROIDISM SECONDARY
     Dosage: 30 UNK, QD
     Route: 048
     Dates: start: 20141001, end: 20150808

REACTIONS (2)
  - Generalised oedema [Not Recovered/Not Resolved]
  - Hypertension [Fatal]

NARRATIVE: CASE EVENT DATE: 20150408
